FAERS Safety Report 17202490 (Version 1)
Quarter: 2019Q4

REPORT INFORMATION
  Report Type: Spontaneous
  Country: AT (occurrence: AT)
  Receive Date: 20191226
  Receipt Date: 20191226
  Transmission Date: 20200122
  Serious: Yes (Other)
  Sender: FDA-Public Use
  Company Number: AT-MYLANLABS-2019M1120175

PATIENT
  Age: 79 Year
  Sex: Female

DRUGS (14)
  1. OXALIPLATIN. [Suspect]
     Active Substance: OXALIPLATIN
     Indication: ADENOCARCINOMA OF COLON
     Dosage: UNK
     Route: 065
     Dates: start: 201711, end: 201801
  2. TRIFLURIDINE. [Concomitant]
     Active Substance: TRIFLURIDINE
     Dosage: UNK
  3. 5-FU                               /00098801/ [Concomitant]
     Active Substance: FLUOROURACIL
     Indication: ADENOCARCINOMA OF COLON
     Dosage: UNK
     Route: 042
     Dates: start: 201801
  4. XELODA [Suspect]
     Active Substance: CAPECITABINE
     Indication: ADENOCARCINOMA OF COLON
     Dosage: UNK
     Route: 065
     Dates: start: 2012, end: 2012
  5. CAPECITABINE. [Suspect]
     Active Substance: CAPECITABINE
     Indication: ADENOCARCINOMA OF COLON
     Dosage: DOSE REDUCED AND SUBSEQUENTLY WITHDRAWN
     Dates: start: 201208, end: 2012
  6. LEUCOVORIN                         /00566701/ [Suspect]
     Active Substance: LEUCOVORIN
     Indication: METASTASIS
  7. BEVACIZUMAB. [Suspect]
     Active Substance: BEVACIZUMAB
     Indication: ADENOCARCINOMA OF COLON
     Dosage: UNK
     Route: 065
     Dates: start: 201711, end: 201801
  8. 5-FU                               /00098801/ [Suspect]
     Active Substance: FLUOROURACIL
     Indication: ADENOCARCINOMA OF COLON
     Dosage: UNK
     Route: 065
     Dates: start: 201711
  9. BEVACIZUMAB. [Suspect]
     Active Substance: BEVACIZUMAB
     Indication: METASTASIS
  10. LEUCOVORIN                         /00566701/ [Suspect]
     Active Substance: LEUCOVORIN
     Indication: ADENOCARCINOMA OF COLON
     Dosage: UNK
     Route: 065
     Dates: start: 201711, end: 201801
  11. 5-FU                               /00098801/ [Suspect]
     Active Substance: FLUOROURACIL
     Indication: METASTASIS
  12. IRINOTECAN [Concomitant]
     Active Substance: IRINOTECAN
     Indication: METASTASIS
     Dosage: UNK
     Route: 065
     Dates: start: 201801
  13. TIPIRACIL [Concomitant]
     Active Substance: TIPIRACIL
     Dosage: UNK
  14. AFLIBERCEPT [Concomitant]
     Active Substance: AFLIBERCEPT
     Indication: METASTASIS
     Dosage: UNK
     Route: 065
     Dates: start: 201801

REACTIONS (5)
  - Diarrhoea [Unknown]
  - Clostridium difficile infection [Recovered/Resolved]
  - Pneumonia [Unknown]
  - Neutropenia [Unknown]
  - Transient ischaemic attack [Recovered/Resolved]

NARRATIVE: CASE EVENT DATE: 2012
